FAERS Safety Report 4372741-6 (Version None)
Quarter: 2004Q2

REPORT INFORMATION
  Report Type: 
  Country: None (occurrence: None)
  Receive Date: 20040526
  Receipt Date: 20040514
  Transmission Date: 20050107
  Serious: Yes (Hospitalization, Other)
  Sender: FDA-Public Use
  Company Number: 2004032760

PATIENT
  Sex: Female
  Weight: 110 kg

DRUGS (2)
  1. NEURONTIN [Suspect]
     Indication: MIGRAINE
     Dosage: 3500 MG (1200 MG, 3 IN 1 D)
  2. CELECOXIB (CELECOXIB) [Concomitant]

REACTIONS (2)
  - LOSS OF CONSCIOUSNESS [None]
  - WEIGHT INCREASED [None]
